FAERS Safety Report 7685199-6 (Version None)
Quarter: 2011Q3

REPORT INFORMATION
  Report Type: 
  Country: None (occurrence: None)
  Receive Date: 20110816
  Receipt Date: 20110809
  Transmission Date: 20111222
  Serious: Yes (Life-Threatening, Hospitalization)
  Sender: FDA-Public Use
  Company Number: DE-SANOFI-AVENTIS-2011SA050828

PATIENT
  Age: 51 Year
  Sex: Female
  Weight: 70 kg

DRUGS (5)
  1. PREDNISONE [Concomitant]
     Indication: RHEUMATOID ARTHRITIS
  2. ARAVA [Suspect]
     Indication: RHEUMATOID ARTHRITIS
     Route: 048
     Dates: start: 20100601, end: 20101001
  3. PREDNISONE [Concomitant]
  4. PREDNISOLONE [Suspect]
     Indication: RHEUMATOID ARTHRITIS
     Route: 048
     Dates: start: 20030101, end: 20100101
  5. ETANERCEPT [Suspect]
     Indication: RHEUMATOID ARTHRITIS
     Route: 058
     Dates: start: 20100801, end: 20101001

REACTIONS (7)
  - RESPIRATORY FAILURE [None]
  - PLEURAL EFFUSION [None]
  - SEPTIC ARTHRITIS STAPHYLOCOCCAL [None]
  - PNEUMONIA CYTOMEGALOVIRAL [None]
  - CHOLESTASIS [None]
  - ATRIAL FIBRILLATION [None]
  - SEPSIS [None]
